FAERS Safety Report 18561046 (Version 2)
Quarter: 2020Q4

REPORT INFORMATION
  Report Type: Report from Study
  Country: GB (occurrence: GB)
  Receive Date: 20201130
  Receipt Date: 20201217
  Transmission Date: 20210114
  Serious: Yes (Other)
  Sender: FDA-Public Use
  Company Number: NVSC2020GB069947

PATIENT
  Sex: Female

DRUGS (4)
  1. LEFLUNOMIDE. [Suspect]
     Active Substance: LEFLUNOMIDE
     Indication: PRODUCT USED FOR UNKNOWN INDICATION
     Dosage: UNK
     Route: 065
  2. COSENTYX [Suspect]
     Active Substance: SECUKINUMAB
     Dosage: 300 MG, QMO
     Route: 058
     Dates: start: 20200123
  3. COSENTYX [Suspect]
     Active Substance: SECUKINUMAB
     Dosage: 300 MG, QMO
     Route: 058
     Dates: start: 201904
  4. COSENTYX [Suspect]
     Active Substance: SECUKINUMAB
     Indication: PSORIATIC ARTHROPATHY
     Dosage: 300 MG, QMO
     Route: 058
     Dates: start: 2019

REACTIONS (19)
  - Asthenia [Unknown]
  - Psoriatic arthropathy [Unknown]
  - Injection site pain [Unknown]
  - Post-traumatic stress disorder [Unknown]
  - Agoraphobia [Unknown]
  - Weight decreased [Unknown]
  - Lower respiratory tract infection [Unknown]
  - Weight increased [Unknown]
  - Phobia [Unknown]
  - Nausea [Unknown]
  - Product dose omission issue [Unknown]
  - Fibromyalgia [Unknown]
  - Depression [Unknown]
  - Personality disorder [Unknown]
  - Mental disorder [Unknown]
  - Muscle spasms [Unknown]
  - Eating disorder [Unknown]
  - Osteoporosis [Unknown]
  - Obsessive-compulsive disorder [Unknown]
